FAERS Safety Report 9408371 (Version 3)
Quarter: 2013Q3

REPORT INFORMATION
  Report Type: Spontaneous
  Country: FR (occurrence: FR)
  Receive Date: 20130718
  Receipt Date: 20130808
  Transmission Date: 20140515
  Serious: Yes (Hospitalization)
  Sender: FDA-Public Use
  Company Number: PHHY2013FR075105

PATIENT
  Age: 77 Year
  Sex: Female

DRUGS (22)
  1. GALVUS [Suspect]
     Indication: TYPE 2 DIABETES MELLITUS
     Dosage: 50 MG, QD
     Route: 048
     Dates: start: 20130626, end: 20130701
  2. LOXEN [Suspect]
     Indication: HYPERTENSION
     Dosage: 50 MG, BID
     Route: 048
     Dates: start: 20130621, end: 20130701
  3. AMOXICILLIN-CLAVULANIC ACID [Suspect]
     Indication: LUNG INFECTION
     Dosage: 1 DF (AMOX 1000 MG, CLAV 125 MG) TID
     Route: 048
     Dates: start: 20130626, end: 20130628
  4. CEFTRIAXONE [Suspect]
     Indication: LUNG INFECTION
     Dosage: 2 G, QD
     Dates: start: 20130622, end: 20130625
  5. TRIATEC [Suspect]
     Indication: HYPERTENSION
     Dosage: 1.25 MG, QD
     Route: 048
     Dates: start: 20130628, end: 20130701
  6. PREVISCAN [Suspect]
     Indication: THROMBOSIS PROPHYLAXIS
     Dosage: 0.75 DF (20 MG)
     Route: 048
     Dates: start: 20130627, end: 20130701
  7. MEDROL [Suspect]
     Dosage: 1 DF (16 MG) QD
     Route: 048
     Dates: start: 20130621, end: 20130623
  8. MEDROL [Suspect]
     Dosage: 0.5 DF (16 MG) QD
     Route: 048
     Dates: start: 20130623, end: 20130624
  9. LASILIX [Concomitant]
     Dosage: 40 MG, UNK
     Dates: start: 20130621
  10. RISORDAN                           /00586302/ [Concomitant]
     Dosage: 10 MG, UNK
     Route: 042
  11. EUPRESSYL [Concomitant]
     Dosage: 100 MG, UNK
     Route: 042
  12. CORDARONE [Concomitant]
     Dosage: 200 MG, (5 DAYS/WEEK)
  13. INEXIUM//ESOMEPRAZOLE SODIUM [Concomitant]
     Dosage: 20 MG, UNK
  14. TAHOR [Concomitant]
     Dosage: 10 MG, UNK
  15. INSULIN [Concomitant]
  16. DOMPERIDONE [Concomitant]
     Dosage: UNK UKN, UNK
     Dates: start: 20130628
  17. BISOPROLOL [Concomitant]
     Dosage: UNK UKN, UNK
     Dates: start: 20130630
  18. ULTRA LEVURE [Concomitant]
     Dosage: UNK UKN, UNK
     Dates: start: 20130626
  19. FORLAX [Concomitant]
     Dosage: UNK UKN, UNK
     Dates: start: 20130630
  20. CALCIPARINE [Concomitant]
     Dosage: UNK UKN, UNK
  21. IPRATROPIUM [Concomitant]
     Dosage: UNK UKN, UNK
  22. TERBUTALINE [Concomitant]
     Dosage: UNK UKN, UNK

REACTIONS (5)
  - Hepatitis [Recovering/Resolving]
  - Malaise [Unknown]
  - Vomiting [Unknown]
  - Ocular icterus [Unknown]
  - Jaundice [Recovering/Resolving]
